FAERS Safety Report 13537404 (Version 1)
Quarter: 2017Q2

REPORT INFORMATION
  Report Type: Spontaneous
  Country: US (occurrence: US)
  Receive Date: 20170511
  Receipt Date: 20170511
  Transmission Date: 20170830
  Serious: Yes (Other)
  Sender: FDA-Public Use
  Company Number: US-TEVA-767089USA

PATIENT
  Age: 52 Year
  Sex: Female

DRUGS (1)
  1. DIAZEPAM. [Suspect]
     Active Substance: DIAZEPAM
     Route: 065

REACTIONS (7)
  - Product odour abnormal [Unknown]
  - Panic attack [Unknown]
  - Malaise [Unknown]
  - Hallucination [Unknown]
  - Feeling abnormal [Unknown]
  - Erythema [Unknown]
  - Product taste abnormal [Unknown]

NARRATIVE: CASE EVENT DATE: 20170503
